FAERS Safety Report 8916953 (Version 1)
Quarter: 2012Q4

REPORT INFORMATION
  Report Type: 
  Country: IT (occurrence: IT)
  Receive Date: 20121120
  Receipt Date: 20121120
  Transmission Date: 20130627
  Serious: Yes (Hospitalization)
  Sender: FDA-Public Use
  Company Number: IT-ASTRAZENECA-2012SE86375

PATIENT
  Age: 15503 Day
  Sex: Female

DRUGS (2)
  1. SEROQUEL [Suspect]
     Dosage: 100 MG, 15 DOSAGE FORM
     Route: 048
     Dates: start: 20121111, end: 20121111
  2. ALCOHOL [Suspect]

REACTIONS (3)
  - Drug abuse [Recovering/Resolving]
  - Intentional self-injury [Recovering/Resolving]
  - Sopor [Recovering/Resolving]
